FAERS Safety Report 6031891-9 (Version None)
Quarter: 2008Q4

REPORT INFORMATION
  Report Type: 
  Country: None (occurrence: None)
  Receive Date: 20081229
  Receipt Date: 20071204
  Transmission Date: 20090506
  Serious: Yes (Other)
  Sender: FDA-Public Use
  Company Number: WAES 0712USA01389

PATIENT

DRUGS (1)
  1. ZETIA [Suspect]
     Dosage: 10 MG, PO
     Route: 048

REACTIONS (1)
  - RHABDOMYOLYSIS [None]
